FAERS Safety Report 14163491 (Version 10)
Quarter: 2018Q2

REPORT INFORMATION
  Report Type: Report from Study
  Country: US (occurrence: US)
  Receive Date: 20171106
  Receipt Date: 20180618
  Transmission Date: 20180711
  Serious: Yes (Hospitalization, Other)
  Sender: FDA-Public Use
  Company Number: US-ACTELION-A-US2017-156020

PATIENT
  Age: 53 Year
  Sex: Female
  Weight: 53.52 kg

DRUGS (9)
  1. UPTRAVI [Suspect]
     Active Substance: SELEXIPAG
     Indication: PULMONARY ARTERIAL HYPERTENSION
     Dosage: 200 MCG, BID
     Route: 048
  2. UPTRAVI [Suspect]
     Active Substance: SELEXIPAG
     Dosage: UNK
     Route: 048
     Dates: start: 20170613
  3. SILDENAFIL CITRATE. [Concomitant]
     Active Substance: SILDENAFIL CITRATE
  4. OPSUMIT [Suspect]
     Active Substance: MACITENTAN
     Indication: PULMONARY ARTERIAL HYPERTENSION
     Dosage: 10 MG, QD
     Route: 048
     Dates: start: 20151120
  5. ADEMPAS [Suspect]
     Active Substance: RIOCIGUAT
     Dosage: UNK
     Route: 065
  6. REMODULIN [Suspect]
     Active Substance: TREPROSTINIL
     Indication: PULMONARY ARTERIAL HYPERTENSION
     Route: 042
  7. ADEMPAS [Suspect]
     Active Substance: RIOCIGUAT
     Indication: PRODUCT USED FOR UNKNOWN INDICATION
     Dosage: 2 MG, TID
     Route: 065
  8. ADEMPAS [Suspect]
     Active Substance: RIOCIGUAT
     Dosage: UNK
     Route: 065
  9. UPTRAVI [Suspect]
     Active Substance: SELEXIPAG
     Dosage: 400 MCG, BID
     Route: 048

REACTIONS (23)
  - Pulmonary arterial pressure increased [Unknown]
  - Confusional state [Unknown]
  - Malaise [Unknown]
  - Dizziness [Unknown]
  - Headache [Recovered/Resolved]
  - Dyspnoea [Unknown]
  - Lung disorder [Unknown]
  - Fatigue [Unknown]
  - Blood pressure increased [Unknown]
  - Pulmonary arterial hypertension [Unknown]
  - Insomnia [Unknown]
  - Laboratory test abnormal [Unknown]
  - Pericardial effusion [Recovering/Resolving]
  - Pleural effusion [Recovering/Resolving]
  - Diarrhoea [Unknown]
  - Hypotension [Unknown]
  - Weight decreased [Unknown]
  - Echocardiogram abnormal [Unknown]
  - Thyroid disorder [Unknown]
  - Liver disorder [Unknown]
  - Cough [Unknown]
  - Mental disorder [Unknown]
  - Condition aggravated [Unknown]

NARRATIVE: CASE EVENT DATE: 20170620
